FAERS Safety Report 8816734 (Version 1)
Quarter: 2012Q4

REPORT INFORMATION
  Report Type: Spontaneous
  Country: US (occurrence: None)
  Receive Date: 20121001
  Receipt Date: 20121001
  Transmission Date: 20130627
  Serious: Yes (Life-Threatening, Hospitalization)
  Sender: FDA-Public Use
  Company Number: JPI-P-025304

PATIENT
  Age: 66 Year
  Sex: Female

DRUGS (1)
  1. XYREM [Suspect]
     Indication: SLEEP DISORDER
     Dosage: 9 gm (4.5 gm, 2 in 1 d), oral
     Route: 048
     Dates: start: 201009

REACTIONS (3)
  - Respiratory arrest [None]
  - Cough [None]
  - Dyspnoea [None]
